FAERS Safety Report 10479063 (Version 1)
Quarter: 2014Q3

REPORT INFORMATION
  Report Type: Spontaneous
  Country: US (occurrence: US)
  Receive Date: 20140926
  Receipt Date: 20140926
  Transmission Date: 20150326
  Serious: Yes (Death, Hospitalization)
  Sender: FDA-Public Use
  Company Number: US-BAYER-2014-142275

PATIENT
  Sex: Male

DRUGS (1)
  1. XOFIGO [Suspect]
     Active Substance: RADIUM RA-223 DICHLORIDE
     Indication: PROSTATE CANCER METASTATIC
     Dosage: RECEIVED 5TH DOSE OF XOFIGO

REACTIONS (3)
  - Sepsis [None]
  - Death [Fatal]
  - Blood count abnormal [None]

NARRATIVE: CASE EVENT DATE: 201409
